FAERS Safety Report 8512867-6 (Version None)
Quarter: 2012Q3

REPORT INFORMATION
  Report Type: 
  Country: None (occurrence: None)
  Receive Date: 20120716
  Receipt Date: 20120705
  Transmission Date: 20120928
  Serious: Yes (Other)
  Sender: FDA-Public Use
  Company Number: RS-CELGENEUS-308-21880-12041102

PATIENT
  Sex: Male
  Weight: 71 kg

DRUGS (10)
  1. DEXAMETHASONE [Suspect]
     Route: 065
     Dates: start: 20111226, end: 20120409
  2. ASPIRIN [Concomitant]
     Indication: ANTIPLATELET THERAPY
  3. REVLIMID [Suspect]
     Route: 048
     Dates: start: 20111226, end: 20120115
  4. REVLIMID [Suspect]
     Route: 048
     Dates: start: 20120220, end: 20120408
  5. FARIN [Concomitant]
     Dosage: 5 MILLIGRAM
     Route: 048
     Dates: start: 20120328
  6. ASPIRIN [Concomitant]
     Indication: ANTICOAGULANT THERAPY
     Dosage: 100 MILLIGRAM
     Route: 048
     Dates: start: 20110709
  7. REVLIMID [Suspect]
     Indication: MULTIPLE MYELOMA
     Route: 048
     Dates: start: 20110711, end: 20111120
  8. LANZUL S [Concomitant]
     Indication: PROPHYLAXIS
     Dosage: 15 MILLIGRAM
     Route: 048
     Dates: start: 20110709
  9. DEXAMETHASONE [Suspect]
     Indication: MULTIPLE MYELOMA
     Route: 065
     Dates: start: 20110711, end: 20111121
  10. FARIN [Concomitant]
     Indication: THROMBOSIS PROPHYLAXIS
     Dosage: 5 MILLIGRAM
     Route: 048
     Dates: start: 20120131, end: 20120324

REACTIONS (1)
  - MALIGNANT MELANOMA [None]
